FAERS Safety Report 7320837-9 (Version None)
Quarter: 2011Q1

REPORT INFORMATION
  Report Type: 
  Country: None (occurrence: None)
  Receive Date: 20110228
  Receipt Date: 20110222
  Transmission Date: 20110831
  Serious: Yes (Hospitalization)
  Sender: FDA-Public Use
  Company Number: CA-ROCHE-760643

PATIENT
  Sex: Female

DRUGS (3)
  1. COPEGUS [Suspect]
     Route: 048
     Dates: start: 20101217
  2. PEGASYS [Suspect]
     Route: 058
     Dates: start: 20101217, end: 20110201
  3. PEGASYS [Suspect]
     Dosage: REDUCED DOSE
     Route: 058
     Dates: start: 20110201

REACTIONS (1)
  - ASCITES [None]
